FAERS Safety Report 5608897-4 (Version None)
Quarter: 2008Q1

REPORT INFORMATION
  Report Type: 
  Country: None (occurrence: None)
  Receive Date: 20080129
  Receipt Date: 20080129
  Transmission Date: 20080703
  Serious: Yes (Other)
  Sender: FDA-Public Use
  Company Number: None

PATIENT
  Age: 51 Year
  Sex: Female
  Weight: 70.3075 kg

DRUGS (1)
  1. CHANTIX [Suspect]
     Indication: SMOKING CESSATION THERAPY
     Dosage: 1 TABLET  DAILY FOR 3 DAYS;  2 TABLETS DAILY FOR REMAINDE

REACTIONS (4)
  - AGGRESSION [None]
  - ATRIAL FIBRILLATION [None]
  - DEPRESSION [None]
  - HEART RATE INCREASED [None]
